FAERS Safety Report 19828398 (Version 1)
Quarter: 2021Q3

REPORT INFORMATION
  Report Type: Report from Study
  Country: IT (occurrence: IT)
  Receive Date: 20210914
  Receipt Date: 20210914
  Transmission Date: 20211014
  Serious: Yes (Other)
  Sender: FDA-Public Use
  Company Number: IT-MYLANLABS-2021M1061464

PATIENT
  Age: 45 Year
  Sex: Female
  Weight: 58 kg

DRUGS (5)
  1. SOLDESAM [Concomitant]
     Active Substance: DEXAMETHASONE
     Indication: PREMEDICATION
     Dosage: 8 MILLIGRAM
     Route: 042
  2. LIMICAN [Concomitant]
     Active Substance: ALIZAPRIDE HYDROCHLORIDE
     Indication: PREMEDICATION
     Dosage: 100 MILLIGRAM
     Route: 042
  3. TRASTUZUMAB. [Suspect]
     Active Substance: TRASTUZUMAB
     Indication: BREAST CANCER
     Dosage: 116 MILLIGRAM, CYCLE
     Route: 042
     Dates: start: 20210218
  4. PACLITAXEL TEVA [Suspect]
     Active Substance: PACLITAXEL
     Indication: BREAST CANCER
     Dosage: 125 MILLIGRAM, CYCLE
     Route: 042
     Dates: start: 20210218
  5. TRIMETON [Concomitant]
     Active Substance: CHLORPHENIRAMINE MALEATE
     Indication: PREMEDICATION
     Dosage: 10 MILLIGRAM
     Route: 042

REACTIONS (3)
  - Pyrexia [Unknown]
  - Transaminases increased [Unknown]
  - Mastitis [Unknown]

NARRATIVE: CASE EVENT DATE: 20210415
